FAERS Safety Report 20005956 (Version 1)
Quarter: 2021Q4

REPORT INFORMATION
  Report Type: Spontaneous
  Country: US (occurrence: US)
  Receive Date: 20211027
  Receipt Date: 20211027
  Transmission Date: 20220303
  Serious: Yes (Hospitalization)
  Sender: FDA-Public Use
  Company Number: US-ROCHE-2938655

PATIENT
  Age: 57 Year
  Sex: Female
  Weight: 50 kg

DRUGS (4)
  1. ACTEMRA [Suspect]
     Active Substance: TOCILIZUMAB
     Indication: COVID-19
     Dosage: 400 MG/100 ML VIAL GIVEN IV ;ONGOING: NO
     Route: 042
     Dates: start: 20211013, end: 20211013
  2. ACTEMRA [Suspect]
     Active Substance: TOCILIZUMAB
     Indication: COVID-19 pneumonia
  3. CIPROFLOXACIN [Concomitant]
     Active Substance: CIPROFLOXACIN
  4. PIPERACILLIN SODIUM [Concomitant]
     Active Substance: PIPERACILLIN SODIUM

REACTIONS (4)
  - Chest pain [Recovering/Resolving]
  - Dyspnoea [Recovering/Resolving]
  - Off label use [Unknown]
  - Tremor [Unknown]

NARRATIVE: CASE EVENT DATE: 20211013
